FAERS Safety Report 18285759 (Version 2)
Quarter: 2020Q3

REPORT INFORMATION
  Report Type: Report from Study
  Country: IT (occurrence: IT)
  Receive Date: 20200919
  Receipt Date: 20200922
  Transmission Date: 20201103
  Serious: Yes (Other)
  Sender: FDA-Public Use
  Company Number: IT-TEVA-2020-IT-1828314

PATIENT
  Age: 72 Year
  Sex: Female
  Weight: 40 kg

DRUGS (5)
  1. INHIXA 10,000 IU (100 MG)/1 ML SOLUTION FOR INJECTION [Concomitant]
     Active Substance: ENOXAPARIN SODIUM
  2. FLUOROURACIL. [Suspect]
     Active Substance: FLUOROURACIL
     Indication: COLORECTAL ADENOCARCINOMA
     Dosage: 2167 MILLIGRAM
     Dates: start: 20200227, end: 20200618
  3. IRINOTECAN HYDROCHLORIDE TRIHYDRATE [Suspect]
     Active Substance: IRINOTECAN HYDROCHLORIDE
     Indication: COLON CANCER
     Dosage: 116.1MILLIGRAM
     Route: 042
     Dates: start: 20200227, end: 20200604
  4. ERBITUX [Suspect]
     Active Substance: CETUXIMAB
     Dates: start: 20200227, end: 20200618
  5. OMEPRAZOLO EUROGENERICI 20 MG CAPSULE RIGIDE GASTRORESISTENTI [Concomitant]

REACTIONS (2)
  - Diarrhoea [Unknown]
  - Hyperleukocytosis [Unknown]

NARRATIVE: CASE EVENT DATE: 20200618
